FAERS Safety Report 5137930-1 (Version None)
Quarter: 2006Q4

REPORT INFORMATION
  Report Type: 
  Country: None (occurrence: None)
  Receive Date: 20061030
  Receipt Date: 20060214
  Transmission Date: 20070319
  Serious: No
  Sender: FDA-Public Use
  Company Number: US-GLAXOSMITHKLINE-A0593652A

PATIENT
  Age: 62 Year
  Sex: Female

DRUGS (7)
  1. ADVAIR HFA [Suspect]
     Indication: ASTHMA
     Dosage: 1PUFF TWICE PER DAY
     Route: 055
     Dates: start: 20050301
  2. ALBUTEROL [Concomitant]
  3. ZYRTEC [Concomitant]
  4. SUDAFED 12 HOUR [Concomitant]
  5. SINGULAIR [Concomitant]
  6. LISINOPRIL [Concomitant]
  7. LIPITOR [Concomitant]

REACTIONS (1)
  - TOOTH DISCOLOURATION [None]
